FAERS Safety Report 21137416 (Version 3)
Quarter: 2022Q3

REPORT INFORMATION
  Report Type: Report from Study
  Country: US (occurrence: US)
  Receive Date: 20220727
  Receipt Date: 20220923
  Transmission Date: 20221027
  Serious: Yes (Other)
  Sender: FDA-Public Use
  Company Number: US-GW PHARMA-2022-US-024658

PATIENT
  Age: 4 Year
  Sex: Female

DRUGS (4)
  1. EPIDIOLEX [Suspect]
     Active Substance: CANNABIDIOL
     Indication: Lennox-Gastaut syndrome
     Dosage: 4 MILLILITER
     Route: 048
     Dates: start: 20220504
  2. EPIDIOLEX [Suspect]
     Active Substance: CANNABIDIOL
     Dosage: 4 MILLILITER
     Route: 048
     Dates: start: 20220503
  3. EPIDIOLEX [Suspect]
     Active Substance: CANNABIDIOL
     Dosage: 1 MILLILITER, BID
     Dates: start: 20220510
  4. EPIDIOLEX [Suspect]
     Active Substance: CANNABIDIOL
     Dosage: 0.5 MILLILITER, BID
     Dates: start: 20220622

REACTIONS (3)
  - Seizure [Unknown]
  - Condition aggravated [Unknown]
  - Psychomotor hyperactivity [Unknown]

NARRATIVE: CASE EVENT DATE: 20220503
